FAERS Safety Report 14669067 (Version 1)
Quarter: 2018Q1

REPORT INFORMATION
  Report Type: Spontaneous
  Country: CA (occurrence: CA)
  Receive Date: 20180322
  Receipt Date: 20180322
  Transmission Date: 20180509
  Serious: Yes (Other)
  Sender: FDA-Public Use
  Company Number: CA-BAYER-2018-051690

PATIENT
  Age: 39 Year
  Sex: Female
  Weight: 61.23 kg

DRUGS (2)
  1. MIRENA [Suspect]
     Active Substance: LEVONORGESTREL
     Indication: CONTRACEPTION
  2. MIRENA [Suspect]
     Active Substance: LEVONORGESTREL
     Indication: CONTRACEPTION
     Dosage: 20 MCG/24HR, CONT
     Route: 015

REACTIONS (14)
  - Breast pain [Unknown]
  - Nausea [Unknown]
  - Alopecia [Unknown]
  - Migraine [Unknown]
  - Night sweats [Unknown]
  - Affective disorder [Unknown]
  - Acne [Unknown]
  - Anxiety [Unknown]
  - Back pain [Unknown]
  - Vision blurred [Unknown]
  - Hypertrichosis [Unknown]
  - Libido decreased [Unknown]
  - Depression [Unknown]
  - Hair growth rate abnormal [Unknown]
